FAERS Safety Report 8952977 (Version 3)
Quarter: 2013Q1

REPORT INFORMATION
  Report Type: Spontaneous
  Country: US (occurrence: US)
  Receive Date: 20121203
  Receipt Date: 20130128
  Transmission Date: 20140127
  Serious: Yes (Hospitalization, Other)
  Sender: FDA-Public Use
  Company Number: US-PFIZER INC-2012300311

PATIENT
  Age: 71 Year
  Sex: Male
  Weight: 94.79 kg

DRUGS (11)
  1. TORISEL [Suspect]
     Indication: RENAL CELL CARCINOMA
     Dosage: 25 MG, WEEKLY
     Route: 042
     Dates: start: 20121002, end: 20121113
  2. TORISEL [Suspect]
     Dosage: UNK
     Dates: end: 20121113
  3. DULERA [Concomitant]
     Dosage: UNK, AS NEEDED
  4. VICODIN [Concomitant]
     Indication: PAIN
     Dosage: HYDROCODONE BITARTRATE 5MG / ACETAMINOPHEN 325 MG,AS NEEDED
  5. OMEPRAZOLE [Concomitant]
     Dosage: 20 MG, DAILY
  6. METFORMIN [Concomitant]
     Indication: BLOOD GLUCOSE INCREASED
     Dosage: 500 MG, DAILY
  7. CLONAZEPAM [Concomitant]
     Indication: INSOMNIA
     Dosage: 0.5 MG, DAILY
  8. FISH OIL [Concomitant]
     Dosage: UNK
  9. ZOFRAN [Concomitant]
     Indication: PREMEDICATION
     Dosage: 8 MG, PRE TREATMENT
     Dates: start: 20121002, end: 20121113
  10. BENADRYL [Concomitant]
     Indication: PREMEDICATION
     Dosage: 25 MG, PRE TREATMENT
     Dates: start: 20121002, end: 20121113
  11. CLARITIN [Concomitant]
     Indication: PREMEDICATION
     Dosage: 10 MG, PRE TREATMENT
     Dates: start: 20121002, end: 20121106

REACTIONS (7)
  - Poor quality drug administered [Unknown]
  - Pyrexia [Recovered/Resolved]
  - Renal failure acute [Unknown]
  - Dyspnoea [Not Recovered/Not Resolved]
  - Fatigue [Not Recovered/Not Resolved]
  - Nausea [Unknown]
  - Hypophagia [Unknown]
